FAERS Safety Report 7218684-1 (Version None)
Quarter: 2011Q1

REPORT INFORMATION
  Report Type: 
  Country: None (occurrence: None)
  Receive Date: 20110110
  Receipt Date: 20100927
  Transmission Date: 20110831
  Serious: No
  Sender: FDA-Public Use
  Company Number: US-ABBOTT-10P-163-0674805-00

PATIENT
  Sex: Male
  Weight: 81.72 kg

DRUGS (1)
  1. VICODIN [Suspect]
     Indication: PAIN
     Dates: start: 19990101, end: 20090101

REACTIONS (1)
  - DRUG INEFFECTIVE [None]
